FAERS Safety Report 11821039 (Version 2)
Quarter: 2016Q2

REPORT INFORMATION
  Report Type: Spontaneous
  Country: US (occurrence: US)
  Receive Date: 20151210
  Receipt Date: 20160413
  Transmission Date: 20160815
  Serious: No
  Sender: FDA-Public Use
  Company Number: US-JNJFOC-20150800845

PATIENT
  Age: 66 Year
  Sex: Male

DRUGS (5)
  1. MORNIFLUMATE [Concomitant]
     Active Substance: MORNIFLUMATE
  2. IMBRUVICA [Suspect]
     Active Substance: IBRUTINIB
     Indication: WALDENSTROM^S MACROGLOBULINAEMIA
     Route: 048
     Dates: start: 20150228
  3. ACYCLOVIR. [Concomitant]
     Active Substance: ACYCLOVIR
  4. PREDNISONE. [Concomitant]
     Active Substance: PREDNISONE
  5. ALLOPURINOL. [Concomitant]
     Active Substance: ALLOPURINOL

REACTIONS (3)
  - Incorrect dose administered [Not Recovered/Not Resolved]
  - Nausea [Unknown]
  - Arthralgia [Unknown]

NARRATIVE: CASE EVENT DATE: 2015
